FAERS Safety Report 8014681-7 (Version None)
Quarter: 2011Q4

REPORT INFORMATION
  Report Type: 
  Country: None (occurrence: None)
  Receive Date: 20111229
  Receipt Date: 20111220
  Transmission Date: 20120403
  Serious: No
  Sender: FDA-Public Use
  Company Number: US-B.I. PHARMACEUTICALS,INC./RIDGEFIELD-2011-BP-28494BP

PATIENT
  Sex: Female

DRUGS (10)
  1. SPIRIVA [Suspect]
     Indication: CHRONIC OBSTRUCTIVE PULMONARY DISEASE
     Dosage: 18 MCG
     Route: 055
     Dates: start: 20090101
  2. AMITRIPTYLINE HCL [Concomitant]
     Indication: INSOMNIA
  3. POTASSIUM KCL [Concomitant]
     Indication: FLUID RETENTION
  4. PNUEMONIA VACCINE [Concomitant]
     Indication: CHRONIC OBSTRUCTIVE PULMONARY DISEASE
     Dates: start: 20110101
  5. VENTOLIN [Concomitant]
     Indication: CHRONIC OBSTRUCTIVE PULMONARY DISEASE
  6. VERAPAMIL [Concomitant]
     Indication: HYPERTENSION
     Dosage: 240 MG
     Route: 048
  7. LASIX [Concomitant]
     Indication: FLUID RETENTION
  8. FLEXERIL [Concomitant]
     Indication: FIBROMYALGIA
  9. ADVAIR DISKUS 100/50 [Concomitant]
     Indication: CHRONIC OBSTRUCTIVE PULMONARY DISEASE
  10. HYDROCHLOROTHIAZIDE [Concomitant]
     Indication: HYPERTENSION
     Dosage: 50 MG
     Route: 048

REACTIONS (2)
  - BRONCHITIS [None]
  - PYREXIA [None]
